FAERS Safety Report 7278752-5 (Version None)
Quarter: 2011Q1

REPORT INFORMATION
  Report Type: 
  Country: None (occurrence: None)
  Receive Date: 20110207
  Receipt Date: 20110128
  Transmission Date: 20110831
  Serious: Yes (Hospitalization)
  Sender: FDA-Public Use
  Company Number: US-MILLENNIUM PHARMACEUTICALS, INC.-2010-06128

PATIENT
  Sex: Male
  Weight: 68.2 kg

DRUGS (17)
  1. VELCADE [Suspect]
     Indication: MULTIPLE MYELOMA
     Dosage: UNK
     Route: 065
     Dates: start: 20090519
  2. ASPIRIN [Concomitant]
  3. DOXIL [Suspect]
     Indication: MULTIPLE MYELOMA
     Dosage: UNK
     Route: 065
     Dates: start: 20090519
  4. VITAMIN E                          /00110501/ [Concomitant]
  5. CELEBREX [Concomitant]
  6. TYLENOL (CAPLET) [Concomitant]
  7. VITAMIN A [Concomitant]
  8. LENALIDOMIDE [Suspect]
     Indication: MULTIPLE MYELOMA
     Dosage: UNK
     Route: 065
     Dates: start: 20090519
  9. PROTONIX [Concomitant]
  10. VITAMIN B1 TAB [Concomitant]
  11. FOLIC ACID [Concomitant]
  12. MIRALAX [Concomitant]
  13. VITAMIN B12                        /00056201/ [Concomitant]
  14. VITAMIN B6 [Concomitant]
  15. ZOCOR [Concomitant]
  16. ACYCLOVIR [Concomitant]
  17. DEXAMETHASONE [Suspect]
     Indication: MULTIPLE MYELOMA
     Dosage: UNK
     Route: 065
     Dates: start: 20090519

REACTIONS (1)
  - CHOLECYSTITIS [None]
